FAERS Safety Report 10418254 (Version 1)
Quarter: 2014Q2

REPORT INFORMATION
  Report Type: Spontaneous
  Country: US (occurrence: None)
  Receive Date: 20140613
  Receipt Date: 20140613
  Transmission Date: 20141212
  Serious: No
  Sender: FDA-Public Use
  Company Number: 1358431

PATIENT
  Sex: Female

DRUGS (1)
  1. ZELBORAF (VEMURAFENIB) [Suspect]
     Indication: METASTATIC MALIGNANT MELANOMA
     Dosage: UNKNOWN  DOSE FREQUENCY + ROUTE USED

REACTIONS (2)
  - Dysphagia [None]
  - Hip fracture [None]
